FAERS Safety Report 5530204-6 (Version None)
Quarter: 2007Q4

REPORT INFORMATION
  Report Type: 
  Country: None (occurrence: None)
  Receive Date: 20071130
  Receipt Date: 20071119
  Transmission Date: 20080405
  Serious: Yes (Hospitalization, Other)
  Sender: FDA-Public Use
  Company Number: PHNU2007DE03429

PATIENT
  Sex: Female

DRUGS (2)
  1. ZOLEDRONIC ACID [Suspect]
     Indication: MULTIPLE MYELOMA
     Dosage: 4 MG, MONTHLY
     Route: 042
     Dates: start: 20020319
  2. ZOLEDRONIC ACID [Suspect]
     Dosage: 4 MG, EVERY EIGHT WEEKS
     Route: 042
     Dates: end: 20070122

REACTIONS (11)
  - BIOPSY SITE UNSPECIFIED ABNORMAL [None]
  - DENTAL PROSTHESIS USER [None]
  - INFLAMMATION [None]
  - ORAL INTAKE REDUCED [None]
  - OSTEITIS [None]
  - OSTEONECROSIS [None]
  - OSTEOTOMY [None]
  - PLASTIC SURGERY [None]
  - SEQUESTRECTOMY [None]
  - TOOTH EXTRACTION [None]
  - WEIGHT DECREASED [None]
